FAERS Safety Report 7100172-4 (Version None)
Quarter: 2010Q4

REPORT INFORMATION
  Report Type: 
  Country: None (occurrence: None)
  Receive Date: 20101112
  Receipt Date: 20100708
  Transmission Date: 20110411
  Serious: No
  Sender: FDA-Public Use
  Company Number: A0871207A

PATIENT
  Sex: Female

DRUGS (4)
  1. COREG [Suspect]
     Dosage: 12.5MG TWICE PER DAY
     Dates: start: 20050801
  2. PLAVIX [Suspect]
     Dosage: 75MG PER DAY
     Route: 048
     Dates: start: 20050401
  3. ASPIRIN [Suspect]
     Dates: start: 20050401
  4. NEURONTIN [Concomitant]

REACTIONS (2)
  - ALOPECIA [None]
  - CONTUSION [None]
